FAERS Safety Report 7383910-5 (Version None)
Quarter: 2011Q1

REPORT INFORMATION
  Report Type: 
  Country: None (occurrence: None)
  Receive Date: 20110330
  Receipt Date: 20110328
  Transmission Date: 20110831
  Serious: Yes (Hospitalization)
  Sender: FDA-Public Use
  Company Number: IT-ABBOTT-11P-083-0714762-00

PATIENT
  Age: 38 Year
  Sex: Male

DRUGS (4)
  1. DEPAKENE [Suspect]
     Indication: INTENTIONAL OVERDOSE
     Dosage: ONCE
     Route: 048
     Dates: start: 20110318, end: 20110318
  2. CIPRALEX FILM-COATED TABLETS [Suspect]
     Indication: INTENTIONAL OVERDOSE
     Dosage: ONCE
     Route: 048
     Dates: start: 20110318, end: 20110318
  3. ESOMEPRAZOLE [Suspect]
     Indication: INTENTIONAL OVERDOSE
     Dosage: 80 MG ONCE
     Route: 048
     Dates: start: 20110318, end: 20110318
  4. TALOFEN [Suspect]
     Indication: INTENTIONAL OVERDOSE
     Dosage: ONCE
     Route: 048
     Dates: start: 20110318, end: 20110318

REACTIONS (3)
  - SINUS TACHYCARDIA [None]
  - INTENTIONAL OVERDOSE [None]
  - SOPOR [None]
